FAERS Safety Report 11355004 (Version 2)
Quarter: 2015Q3

REPORT INFORMATION
  Report Type: Spontaneous
  Country: US (occurrence: US)
  Receive Date: 20150807
  Receipt Date: 20150902
  Transmission Date: 20151125
  Serious: No
  Sender: FDA-Public Use
  Company Number: US-JNJFOC-20150712719

PATIENT
  Age: 47 Year
  Sex: Male

DRUGS (1)
  1. RISPERDAL CONSTA [Suspect]
     Active Substance: RISPERIDONE
     Indication: MENTAL DISORDER
     Route: 030

REACTIONS (3)
  - Device malfunction [Unknown]
  - Syringe issue [Unknown]
  - Drug administration error [Unknown]

NARRATIVE: CASE EVENT DATE: 20150710
